FAERS Safety Report 22074314 (Version 2)
Quarter: 2023Q2

REPORT INFORMATION
  Report Type: Report from Study
  Country: FR (occurrence: FR)
  Receive Date: 20230308
  Receipt Date: 20230516
  Transmission Date: 20230721
  Serious: Yes (Other)
  Sender: FDA-Public Use
  Company Number: FR-GILEAD-2023-0619400

PATIENT
  Age: 55 Year
  Sex: Male
  Weight: 83 kg

DRUGS (16)
  1. AXICABTAGENE CILOLEUCEL [Suspect]
     Active Substance: AXICABTAGENE CILOLEUCEL
     Indication: Non-Hodgkin^s lymphoma
     Dosage: UNK
     Route: 042
     Dates: start: 20190725, end: 20190725
  2. CYCLOPHOSPHAMIDE [Suspect]
     Active Substance: CYCLOPHOSPHAMIDE
     Indication: Bone marrow conditioning regimen
     Dosage: ^500^, QD
     Route: 065
     Dates: start: 20190720, end: 20190722
  3. FLUDARABINE [Suspect]
     Active Substance: FLUDARABINE PHOSPHATE
     Indication: Bone marrow conditioning regimen
     Dosage: ^30^, QD
     Route: 065
     Dates: start: 20190720, end: 20190722
  4. MESNA [Suspect]
     Active Substance: MESNA
     Indication: Prophylaxis
     Dosage: ^150^
     Route: 065
     Dates: start: 20190720, end: 20190720
  5. MESNA [Suspect]
     Active Substance: MESNA
     Dosage: ^150^
     Route: 065
     Dates: start: 20190720, end: 20190720
  6. MESNA [Suspect]
     Active Substance: MESNA
     Dosage: ^150^
     Route: 065
     Dates: start: 20190721, end: 20190721
  7. MESNA [Suspect]
     Active Substance: MESNA
     Dosage: ^150^
     Route: 065
     Dates: start: 20190721, end: 20190721
  8. MESNA [Suspect]
     Active Substance: MESNA
     Dosage: ^150^
     Route: 065
     Dates: start: 20190721, end: 20190721
  9. MESNA [Suspect]
     Active Substance: MESNA
     Dosage: ^150^
     Route: 065
     Dates: start: 20190721, end: 20190721
  10. MESNA [Suspect]
     Active Substance: MESNA
     Dosage: ^150^
     Route: 065
     Dates: start: 20190722, end: 20190722
  11. MESNA [Suspect]
     Active Substance: MESNA
     Dosage: ^150^
     Route: 065
     Dates: start: 20190722, end: 20190722
  12. MESNA [Suspect]
     Active Substance: MESNA
     Dosage: ^150^
     Route: 065
     Dates: start: 20190722, end: 20190722
  13. MESNA [Suspect]
     Active Substance: MESNA
     Dosage: ^150^
     Route: 065
     Dates: start: 20190722, end: 20190722
  14. MESNA [Suspect]
     Active Substance: MESNA
     Dosage: ^150^
     Route: 065
     Dates: start: 20190723, end: 20190723
  15. MESNA [Suspect]
     Active Substance: MESNA
     Dosage: ^150^
     Route: 065
     Dates: start: 20190723, end: 20190723
  16. PERINDOPRIL [Concomitant]
     Active Substance: PERINDOPRIL
     Dosage: 5,MG,DAILY
     Dates: start: 20190528

REACTIONS (1)
  - Myelodysplastic syndrome [Not Recovered/Not Resolved]

NARRATIVE: CASE EVENT DATE: 20230222
